FAERS Safety Report 6580985-8 (Version None)
Quarter: 2010Q1

REPORT INFORMATION
  Report Type: 
  Country: None (occurrence: None)
  Receive Date: 20100215
  Receipt Date: 20100203
  Transmission Date: 20100710
  Serious: Yes (Hospitalization)
  Sender: FDA-Public Use
  Company Number: FR-BRISTOL-MYERS SQUIBB COMPANY-14972715

PATIENT
  Age: 78 Year
  Sex: Female

DRUGS (11)
  1. GLUCOPHAGE [Suspect]
     Indication: DIABETES MELLITUS
     Dates: end: 20091216
  2. ALLOPURINOL [Suspect]
     Indication: GOUT
     Dates: start: 20091115, end: 20091208
  3. VOLTAREN [Suspect]
     Indication: ARTHRALGIA
     Route: 048
     Dates: start: 20091211, end: 20091211
  4. COLCHICINE [Suspect]
     Indication: GOUT
     Route: 048
     Dates: start: 20091208, end: 20091208
  5. AMAREL [Suspect]
     Indication: TYPE 2 DIABETES MELLITUS
     Route: 048
     Dates: end: 20091216
  6. NEURONTIN [Concomitant]
  7. BUFLOMEDIL [Concomitant]
  8. LASILIX [Concomitant]
  9. CELECTOL [Concomitant]
  10. APROVEL [Concomitant]
  11. LEVOTHYROXINE SODIUM [Concomitant]

REACTIONS (4)
  - CELL DEATH [None]
  - CHOLESTASIS [None]
  - DRUG RASH WITH EOSINOPHILIA AND SYSTEMIC SYMPTOMS [None]
  - RENAL FAILURE [None]
